FAERS Safety Report 23871864 (Version 1)
Quarter: 2024Q2

REPORT INFORMATION
  Report Type: Report from Study
  Country: MX (occurrence: MX)
  Receive Date: 20240520
  Receipt Date: 20240520
  Transmission Date: 20240716
  Serious: Yes (Other)
  Sender: FDA-Public Use
  Company Number: MX-Merck Healthcare KGaA-2024026586

PATIENT
  Age: 9 Year
  Sex: Male

DRUGS (2)
  1. SAIZEN [Suspect]
     Active Substance: SOMATROPIN
     Indication: Growth hormone deficiency
     Route: 058
     Dates: start: 20240507
  2. MELATONIN GUMMIES [Concomitant]
     Indication: Sleep disorder
     Dosage: TWO 2-GRAM

REACTIONS (2)
  - Syncope [Unknown]
  - Injection site pain [Recovered/Resolved]

NARRATIVE: CASE EVENT DATE: 20240511
